FAERS Safety Report 6564771-0 (Version None)
Quarter: 2010Q1

REPORT INFORMATION
  Report Type: 
  Country: None (occurrence: None)
  Receive Date: 20100201
  Receipt Date: 20100120
  Transmission Date: 20100710
  Serious: Yes (Death, Hospitalization)
  Sender: FDA-Public Use
  Company Number: FR-GENENTECH-295546

PATIENT
  Sex: Male
  Weight: 63 kg

DRUGS (4)
  1. MABTHERA [Suspect]
     Indication: IDIOPATHIC THROMBOCYTOPENIC PURPURA
     Dosage: 700 MG, 1/WEEK
     Route: 042
     Dates: start: 20080919, end: 20081010
  2. IMUREL [Suspect]
     Indication: CROHN'S DISEASE
     Dosage: 125 MG, UNK
     Route: 048
     Dates: start: 20070201, end: 20081105
  3. CORTANCYL [Suspect]
     Indication: IDIOPATHIC THROMBOCYTOPENIC PURPURA
     Dosage: 35 MG, UNK
     Route: 048
     Dates: start: 20080822, end: 20081105
  4. REMICADE [Concomitant]
     Indication: DRUG USE FOR UNKNOWN INDICATION

REACTIONS (3)
  - AGRANULOCYTOSIS [None]
  - CELLULITIS GANGRENOUS [None]
  - SEPTIC SHOCK [None]
